FAERS Safety Report 11712769 (Version 1)
Quarter: 2015Q4

REPORT INFORMATION
  Report Type: Spontaneous
  Country: US (occurrence: US)
  Receive Date: 20151104
  Receipt Date: 20151104
  Transmission Date: 20160304
  Serious: No
  Sender: FDA-Public Use
  Company Number: US-ELI_LILLY_AND_COMPANY-US201103008754

PATIENT
  Age: 84 Year
  Sex: Female

DRUGS (1)
  1. FORTEO [Suspect]
     Active Substance: TERIPARATIDE
     Indication: OSTEOPOROSIS

REACTIONS (11)
  - Burning sensation [Unknown]
  - Fall [Recovered/Resolved]
  - Joint swelling [Unknown]
  - Eye contusion [Unknown]
  - Dizziness [Not Recovered/Not Resolved]
  - Malaise [Unknown]
  - Contusion [Unknown]
  - Fall [Recovered/Resolved]
  - Memory impairment [Unknown]
  - Peripheral swelling [Unknown]
  - Renal disorder [Unknown]

NARRATIVE: CASE EVENT DATE: 20110530
